FAERS Safety Report 4879729-7 (Version None)
Quarter: 2006Q1

REPORT INFORMATION
  Report Type: 
  Country: None (occurrence: None)
  Receive Date: 20060113
  Receipt Date: 20050525
  Transmission Date: 20060701
  Serious: Yes (Hospitalization)
  Sender: FDA-Public Use
  Company Number: 2005GB01051

PATIENT
  Age: 25366 Day
  Sex: Female

DRUGS (8)
  1. NOLVADEX [Suspect]
     Indication: BREAST CANCER
     Route: 048
     Dates: start: 19981223, end: 20031223
  2. IPRATROPIUM BROMIDE [Concomitant]
     Indication: CHRONIC OBSTRUCTIVE PULMONARY DISEASE
     Route: 055
     Dates: start: 19991022
  3. PULMICORT [Concomitant]
     Indication: CHRONIC OBSTRUCTIVE PULMONARY DISEASE
     Route: 055
     Dates: start: 19990623
  4. BRICANYL TURBOHALER [Concomitant]
     Indication: CHRONIC OBSTRUCTIVE PULMONARY DISEASE
     Route: 055
     Dates: start: 19990624
  5. FUROSEMIDE [Concomitant]
     Indication: CHRONIC OBSTRUCTIVE PULMONARY DISEASE
     Route: 048
     Dates: start: 19990620
  6. CODYDRAMOL [Concomitant]
     Indication: ARTHRITIS
     Route: 048
     Dates: start: 20011218, end: 20050301
  7. QUININE SULPHATE [Concomitant]
     Indication: MUSCLE SPASMS
     Route: 048
     Dates: start: 19990204
  8. PARACETAMOL [Concomitant]
     Indication: PAIN
     Route: 048
     Dates: end: 20050301

REACTIONS (5)
  - ABDOMINAL PAIN [None]
  - INTESTINAL POLYP [None]
  - PELVIC MASS [None]
  - RECTAL HAEMORRHAGE [None]
  - UTERINE LEIOMYOMA [None]
